FAERS Safety Report 16164392 (Version 1)
Quarter: 2019Q2

REPORT INFORMATION
  Report Type: Other
  Country: SG (occurrence: SG)
  Receive Date: 20190405
  Receipt Date: 20190405
  Transmission Date: 20190711
  Serious: Yes (Life-Threatening, Hospitalization)
  Sender: FDA-Public Use
  Company Number: SG-GENUS_LIFESCIENCES-USA-POI0580201900229

PATIENT
  Age: 43 Year
  Sex: Female

DRUGS (1)
  1. YOSPRALA [Suspect]
     Active Substance: ASPIRIN\OMEPRAZOLE
     Indication: PRODUCT USED FOR UNKNOWN INDICATION
     Route: 061
     Dates: start: 201805, end: 2018

REACTIONS (1)
  - Aspirin-exacerbated respiratory disease [Recovered/Resolved]

NARRATIVE: CASE EVENT DATE: 201805
